FAERS Safety Report 13459622 (Version 1)
Quarter: 2017Q2

REPORT INFORMATION
  Report Type: Report from Study
  Country: MX (occurrence: MX)
  Receive Date: 20170419
  Receipt Date: 20170419
  Transmission Date: 20170830
  Serious: Yes (Hospitalization)
  Sender: FDA-Public Use
  Company Number: MX-UCBSA-2017014851

PATIENT
  Age: 0 Year
  Sex: Male
  Weight: 5.62 kg

DRUGS (6)
  1. RANITIDINE. [Concomitant]
     Active Substance: RANITIDINE
     Indication: PRODUCT USED FOR UNKNOWN INDICATION
     Dosage: UNK, 2X/DAY (BID) 8 DROP
     Dates: start: 201607
  2. NOOTROPIL [Suspect]
     Active Substance: PIRACETAM
     Indication: NERVOUS SYSTEM DISORDER
     Dosage: 0.9 ML, 2X/DAY (BID)
     Route: 048
     Dates: start: 201606
  3. LEVETIRACETAM. [Suspect]
     Active Substance: LEVETIRACETAM
     Indication: NERVOUS SYSTEM DISORDER
     Dosage: 0.5 ML, 2X/DAY (BID)
     Route: 048
     Dates: start: 201607
  4. LEVETIRACETAM. [Suspect]
     Active Substance: LEVETIRACETAM
     Dosage: 1.5 ML, 2X/DAY (BID)
     Route: 048
     Dates: start: 201701
  5. LEVETIRACETAM. [Suspect]
     Active Substance: LEVETIRACETAM
     Indication: OFF LABEL USE
     Dosage: 1 ML, 2X/DAY (BID)
     Route: 048
     Dates: start: 201612
  6. NOOTROPIL [Suspect]
     Active Substance: PIRACETAM
     Indication: OFF LABEL USE

REACTIONS (2)
  - Dysphagia [Not Recovered/Not Resolved]
  - Off label use [Unknown]

NARRATIVE: CASE EVENT DATE: 201606
